FAERS Safety Report 21782828 (Version 1)
Quarter: 2022Q4

REPORT INFORMATION
  Report Type: Spontaneous
  Country: US (occurrence: US)
  Receive Date: 20221227
  Receipt Date: 20221227
  Transmission Date: 20230113
  Serious: Yes (Hospitalization)
  Sender: FDA-Public Use
  Company Number: US-MYLANLABS-2022M1144633

PATIENT
  Age: 44 Year
  Sex: Male

DRUGS (10)
  1. EPINEPHRINE [Suspect]
     Active Substance: EPINEPHRINE
     Indication: Bronchial haemorrhage
     Dosage: LAVAGE
     Route: 065
  2. HEPARIN [Suspect]
     Active Substance: HEPARIN SODIUM
     Indication: Anticoagulant therapy
     Dosage: 5000 INTERNATIONAL UNIT
     Route: 065
  3. SODIUM CHLORIDE [Suspect]
     Active Substance: SODIUM CHLORIDE
     Indication: Bronchial haemorrhage
     Dosage: UNK
     Route: 065
  4. ASPIRIN [Suspect]
     Active Substance: ASPIRIN
     Indication: Antiplatelet therapy
     Dosage: 325 MILLIGRAM (SINGLE DOSE)
     Route: 065
  5. ASPIRIN [Suspect]
     Active Substance: ASPIRIN
     Dosage: 81 MILLIGRAM, QD
     Route: 065
  6. ASPIRIN [Suspect]
     Active Substance: ASPIRIN
     Dosage: THERAPY RESUMED
     Route: 065
  7. CLOPIDOGREL [Suspect]
     Active Substance: CLOPIDOGREL BISULFATE
     Indication: Antiplatelet therapy
     Dosage: 300 MILLIGRAM (SINGLE DOSE)
     Route: 065
  8. CLOPIDOGREL [Suspect]
     Active Substance: CLOPIDOGREL BISULFATE
     Dosage: 75 MILLIGRAM, QD
     Route: 065
  9. CLOPIDOGREL [Suspect]
     Active Substance: CLOPIDOGREL BISULFATE
     Dosage: THERAPY RESUMED
     Route: 065
  10. EPOPROSTENOL [Suspect]
     Active Substance: EPOPROSTENOL
     Indication: Acute respiratory distress syndrome
     Dosage: UNK [RESPIRATORY (INHALATION)}

REACTIONS (3)
  - Bronchial haemorrhage [Recovered/Resolved]
  - Drug ineffective for unapproved indication [Unknown]
  - Off label use [Unknown]
